FAERS Safety Report 4896293-7 (Version None)
Quarter: 2006Q1

REPORT INFORMATION
  Report Type: 
  Country: None (occurrence: None)
  Receive Date: 20060126
  Receipt Date: 20060116
  Transmission Date: 20060701
  Serious: Yes (Hospitalization)
  Sender: FDA-Public Use
  Company Number: FR-2006-000940

PATIENT
  Age: 73 Year
  Sex: Male

DRUGS (5)
  1. SOTALOL HCL [Suspect]
     Indication: ARRHYTHMIA
     Dosage: 160 MG, 2X/DAY, ORAL
     Route: 048
     Dates: start: 20030330, end: 20040420
  2. PRAVASTATIN [Suspect]
     Indication: LIPID METABOLISM DISORDER
     Dosage: 20 MG, 1X/DAY, ORAL
     Route: 048
     Dates: end: 20030330
  3. AMLODIPINE BESYLATE [Suspect]
     Indication: ESSENTIAL HYPERTENSION
     Dosage: 5 MG/D, ORAL
     Route: 048
     Dates: start: 20030330
  4. HYZAAR [Suspect]
     Indication: ESSENTIAL HYPERTENSION
     Dosage: 1X/DAY, ORAL
     Route: 048
     Dates: start: 20030330
  5. PREVISCAN (FLUINDIONE) [Suspect]
     Indication: VENOUS THROMBOSIS
     Dosage: 20 MG, 3X/DAY, ORAL
     Route: 048
     Dates: start: 20030330

REACTIONS (1)
  - PNEUMONITIS [None]
